FAERS Safety Report 7603916-8 (Version None)
Quarter: 2011Q3

REPORT INFORMATION
  Report Type: 
  Country: None (occurrence: None)
  Receive Date: 20110712
  Receipt Date: 20110701
  Transmission Date: 20111222
  Serious: Yes (Other)
  Sender: FDA-Public Use
  Company Number: JP-ROCHE-753045

PATIENT
  Sex: Female
  Weight: 59 kg

DRUGS (14)
  1. AVASTIN [Suspect]
     Indication: COLON CANCER METASTATIC
     Dosage: NOTE: DOSAGE IS UNCERTAIN.
     Route: 041
     Dates: start: 20091201, end: 20100401
  2. OXALIPLATIN [Suspect]
     Dosage: NOTE: DOSAGE IS UNCERTAIN
     Route: 041
     Dates: start: 20100701, end: 20101001
  3. OXALIPLATIN [Suspect]
     Route: 041
     Dates: start: 20101029, end: 20101029
  4. FLUOROURACIL [Concomitant]
     Dosage: NOTE: DOSAGE IS UNCERTAIN.
     Route: 040
     Dates: start: 20100701, end: 20101001
  5. FLUOROURACIL [Concomitant]
     Dosage: NOTE: DOSAGE IS UNCERTAIN.
     Route: 040
     Dates: start: 20091201, end: 20100401
  6. AVASTIN [Suspect]
     Dosage: NOTE: DOSAGE IS UNCERTAIN.
     Route: 041
     Dates: start: 20100701, end: 20101001
  7. OXALIPLATIN [Suspect]
     Indication: COLON CANCER METASTATIC
     Dosage: NOTE: DOSAGE IS UNCERTAIN
     Route: 041
     Dates: start: 20091201, end: 20100401
  8. FLUOROURACIL [Concomitant]
     Dosage: NOTE: DOSAGE IS UNCERTAIN.
     Route: 041
     Dates: start: 20100701, end: 20101001
  9. LEUCOVORIN CALCIUM [Concomitant]
     Indication: COLON CANCER METASTATIC
     Dosage: NOTE: DOSAGE IS UNCERTAIN
     Route: 041
     Dates: start: 20091201, end: 20100401
  10. XELODA [Suspect]
     Indication: COLON CANCER METASTATIC
     Dosage: NOTE: IT IS ONE ADMINISTERING WEEKLY HOLIDAY MEDICINE FOR TWO WEEKS.
     Route: 048
     Dates: start: 20101008, end: 20101224
  11. LEUCOVORIN CALCIUM [Concomitant]
     Dosage: NOTE: DOSAGE IS UNCERTAIN
     Route: 041
     Dates: start: 20100701, end: 20101001
  12. OXALIPLATIN [Suspect]
     Route: 041
     Dates: start: 20101008, end: 20101008
  13. OXALIPLATIN [Suspect]
     Route: 041
     Dates: start: 20101119, end: 20101119
  14. FLUOROURACIL [Concomitant]
     Indication: COLON CANCER METASTATIC
     Dosage: NOTE: DOSAGE IS UNCERTAIN.
     Route: 041
     Dates: start: 20091201, end: 20100401

REACTIONS (2)
  - AMENORRHOEA [None]
  - NEUTROPHIL COUNT DECREASED [None]
